FAERS Safety Report 7030264-X (Version None)
Quarter: 2010Q4

REPORT INFORMATION
  Report Type: 
  Country: None (occurrence: None)
  Receive Date: 20101006
  Receipt Date: 20100915
  Transmission Date: 20110411
  Serious: Yes (Hospitalization, Other)
  Sender: FDA-Public Use
  Company Number: US-BAYER-201015605NA

PATIENT
  Age: 28 Year
  Sex: Female
  Weight: 52 kg

DRUGS (9)
  1. YASMIN [Suspect]
     Indication: CONTRACEPTION
     Route: 048
     Dates: start: 20020901, end: 20100201
  2. OCELLA [Suspect]
     Indication: CONTRACEPTION
     Route: 048
     Dates: start: 20020901, end: 20100201
  3. TUMS [Concomitant]
  4. ZANTAC [Concomitant]
  5. PEPCID [Concomitant]
  6. HURRICAINE [Concomitant]
     Indication: ENDOSCOPIC RETROGRADE CHOLANGIOPANCREATOGRAPHY
     Dates: start: 20080317, end: 20080317
  7. FENTANYL [Concomitant]
     Indication: ENDOSCOPIC RETROGRADE CHOLANGIOPANCREATOGRAPHY
     Dates: start: 20080317, end: 20080317
  8. VERSED [Concomitant]
     Indication: ENDOSCOPIC RETROGRADE CHOLANGIOPANCREATOGRAPHY
     Route: 042
     Dates: start: 20080317, end: 20080317
  9. PROPOFOL [Concomitant]
     Indication: ENDOSCOPIC RETROGRADE CHOLANGIOPANCREATOGRAPHY
     Dates: start: 20080317, end: 20080317

REACTIONS (10)
  - ABDOMINAL PAIN [None]
  - BILE DUCT STONE [None]
  - CHOLECYSTITIS CHRONIC [None]
  - CHOLELITHIASIS [None]
  - DYSPEPSIA [None]
  - GASTRITIS [None]
  - HEPATIC ENZYME INCREASED [None]
  - HEPATIC FUNCTION ABNORMAL [None]
  - JAUNDICE [None]
  - VOMITING [None]
